FAERS Safety Report 21211573 (Version 1)
Quarter: 2022Q3

REPORT INFORMATION
  Report Type: Spontaneous
  Country: US (occurrence: None)
  Receive Date: 20220812
  Receipt Date: 20220812
  Transmission Date: 20221027
  Serious: Yes (Hospitalization)
  Sender: FDA-Public Use
  Company Number: None

PATIENT
  Age: 62 Year
  Sex: Male
  Weight: 75 kg

DRUGS (1)
  1. NIRMATRELVIR\RITONAVIR [Suspect]
     Active Substance: NIRMATRELVIR\RITONAVIR
     Indication: COVID-19
     Dosage: 300/100 MG BID PO?
     Route: 048
     Dates: start: 20220719, end: 20220723

REACTIONS (6)
  - Dyspnoea [None]
  - Chest discomfort [None]
  - Fibrin D dimer increased [None]
  - Fall [None]
  - Pain [None]
  - Respiratory tract congestion [None]

NARRATIVE: CASE EVENT DATE: 20220724
